FAERS Safety Report 12930205 (Version 2)
Quarter: 2017Q1

REPORT INFORMATION
  Report Type: Spontaneous
  Country: US (occurrence: US)
  Receive Date: 20161110
  Receipt Date: 20170109
  Transmission Date: 20170428
  Serious: Yes (Hospitalization)
  Sender: FDA-Public Use
  Company Number: US-ELI_LILLY_AND_COMPANY-US201611000335

PATIENT
  Age: 78 Year
  Sex: Female

DRUGS (7)
  1. SYNTHROID [Concomitant]
     Active Substance: LEVOTHYROXINE SODIUM
  2. LIPITOR [Concomitant]
     Active Substance: ATORVASTATIN CALCIUM
  3. MICARDIS [Concomitant]
     Active Substance: TELMISARTAN
  4. HUMALOG [Suspect]
     Active Substance: INSULIN LISPRO
     Indication: TYPE 1 DIABETES MELLITUS
     Dosage: UNK, SLIDING SCALE
     Dates: start: 1996
  5. CALCIUM [Suspect]
     Active Substance: CALCIUM
     Indication: BLOOD CALCIUM DECREASED
     Dosage: UNK, UNKNOWN
     Route: 065
  6. LANTUS [Concomitant]
     Active Substance: INSULIN GLARGINE
  7. CALCIUM [Suspect]
     Active Substance: CALCIUM
     Indication: TETANY

REACTIONS (8)
  - Endocrine disorder [Unknown]
  - Blood calcium increased [Recovered/Resolved]
  - Blood creatinine increased [Unknown]
  - Renal injury [Unknown]
  - Blood glucose fluctuation [Unknown]
  - Tetany [Unknown]
  - Blood calcium decreased [Unknown]
  - Blood glucose decreased [Unknown]
